FAERS Safety Report 9701363 (Version 1)
Quarter: 2013Q4

REPORT INFORMATION
  Report Type: Spontaneous
  Country: US (occurrence: US)
  Receive Date: 20131121
  Receipt Date: 20131121
  Transmission Date: 20140711
  Serious: No
  Sender: FDA-Public Use
  Company Number: US-GILEAD-2008-0016641

PATIENT
  Sex: Male
  Weight: 72.57 kg

DRUGS (12)
  1. LETAIRIS [Suspect]
     Indication: PULMONARY ARTERIAL HYPERTENSION
     Route: 048
     Dates: start: 20080521
  2. BUMEX [Concomitant]
     Route: 048
  3. ZAROXOLYN [Concomitant]
     Route: 048
  4. AMIODARONE [Concomitant]
     Route: 048
  5. AVODART [Concomitant]
     Route: 048
  6. FLOMAX [Concomitant]
     Route: 048
  7. ASPIRIN [Concomitant]
     Route: 048
  8. SYNTHROID [Concomitant]
     Route: 048
  9. FEXOFENADINE [Concomitant]
     Route: 048
  10. ALLOPURINOL [Concomitant]
     Route: 048
  11. POTASSIUM CHLORIDE [Concomitant]
     Route: 048
  12. COLACE [Concomitant]
     Route: 048

REACTIONS (1)
  - Local swelling [Unknown]
